FAERS Safety Report 18591522 (Version 3)
Quarter: 2020Q4

REPORT INFORMATION
  Report Type: Spontaneous
  Country: DE (occurrence: DE)
  Receive Date: 20201208
  Receipt Date: 20201231
  Transmission Date: 20210114
  Serious: Yes (Other)
  Sender: FDA-Public Use
  Company Number: DE-SUN PHARMACEUTICAL INDUSTRIES LTD-2020R1-270019

PATIENT
  Sex: Female

DRUGS (2)
  1. TRIAM [TRIAMCINOLONE] [Suspect]
     Active Substance: TRIAMCINOLONE
     Dosage: UNK (2 YEARS LATER)
     Route: 030
  2. TRIAM [TRIAMCINOLONE] [Suspect]
     Active Substance: TRIAMCINOLONE
     Indication: RHINITIS ALLERGIC
     Dosage: UNK
     Route: 030
     Dates: start: 201504

REACTIONS (1)
  - Injection site atrophy [Unknown]
